FAERS Safety Report 14814591 (Version 1)
Quarter: 2018Q2

REPORT INFORMATION
  Report Type: Spontaneous
  Country: US (occurrence: US)
  Receive Date: 20180426
  Receipt Date: 20180426
  Transmission Date: 20180711
  Serious: No
  Sender: FDA-Public Use
  Company Number: US-MYLANLABS-2018M1023710

PATIENT
  Sex: Female

DRUGS (2)
  1. CITALOPRAM [Suspect]
     Active Substance: CITALOPRAM HYDROBROMIDE
     Indication: AFFECTIVE DISORDER
     Route: 048
  2. CITALOPRAM [Suspect]
     Active Substance: CITALOPRAM HYDROBROMIDE
     Indication: ABNORMAL BEHAVIOUR

REACTIONS (6)
  - Tearfulness [Unknown]
  - Irritability [Unknown]
  - Drug ineffective [Unknown]
  - Nervousness [Unknown]
  - Disturbance in attention [Unknown]
  - Anxiety [Unknown]
